FAERS Safety Report 19499482 (Version 2)
Quarter: 2021Q3

REPORT INFORMATION
  Report Type: Spontaneous
  Country: MY (occurrence: MY)
  Receive Date: 20210707
  Receipt Date: 20210713
  Transmission Date: 20211014
  Serious: Yes (Other)
  Sender: FDA-Public Use
  Company Number: MY-AUROBINDO-AUR-APL-2021-028235

PATIENT
  Age: 60 Year
  Sex: Male

DRUGS (1)
  1. AUROTAZ?P POWDER FOR INJECTION 4.5G [Suspect]
     Active Substance: PIPERACILLIN SODIUM\TAZOBACTAM SODIUM
     Dosage: 4.5 GRAM, FOUR TIMES/DAY
     Route: 042

REACTIONS (4)
  - Periorbital oedema [Recovered/Resolved]
  - Swelling face [Recovered/Resolved]
  - Pruritus [Recovered/Resolved]
  - Dyspnoea [Recovered/Resolved]
